FAERS Safety Report 21514740 (Version 2)
Quarter: 2022Q4

REPORT INFORMATION
  Report Type: Spontaneous
  Country: DE (occurrence: DE)
  Receive Date: 20221027
  Receipt Date: 20221124
  Transmission Date: 20230112
  Serious: Yes (Hospitalization)
  Sender: FDA-Public Use
  Company Number: DE-TEVA-2022-DE-2819426

PATIENT
  Age: 13 Year
  Sex: Female

DRUGS (2)
  1. COTRIMOXAZOLE [Interacting]
     Active Substance: SULFAMETHOXAZOLE\TRIMETHOPRIM
     Indication: Pyelonephritis acute
     Dosage: OVER 90 MINUTES ON EVERY 12 H
     Route: 050
  2. METHOTREXATE [Interacting]
     Active Substance: METHOTREXATE
     Indication: Acute lymphocytic leukaemia
     Dosage: RECEIVED TEST DOSE 500 MG/M2 FOR TOLERANCE TESTING THROUGH PERFUSOR FOR 30MIN FOLLOWED BY 4500 MG/M
     Route: 050

REACTIONS (4)
  - Mucosal inflammation [Recovered/Resolved]
  - Renal impairment [Unknown]
  - Toxicity to various agents [Unknown]
  - Drug interaction [Unknown]
